FAERS Safety Report 9940103 (Version 1)
Quarter: 2014Q1

REPORT INFORMATION
  Report Type: Report from Study
  Country: US (occurrence: US)
  Receive Date: 20140303
  Receipt Date: 20140303
  Transmission Date: 20141002
  Serious: No
  Sender: FDA-Public Use
  Company Number: US-ABBVIE-13P-163-1036363-00

PATIENT
  Age: 49 Year
  Sex: Female
  Weight: 92.62 kg

DRUGS (4)
  1. HUMIRA [Suspect]
     Indication: PSORIASIS
     Dates: start: 20120616, end: 201210
  2. DERM-SMOOTH OIL [Concomitant]
     Indication: PSORIASIS
  3. TRIAMCINOLONE [Concomitant]
     Indication: PSORIASIS
  4. CLOBETASOL [Concomitant]
     Indication: PSORIASIS

REACTIONS (1)
  - Upper respiratory tract infection [Recovered/Resolved]
